FAERS Safety Report 6431688-1 (Version None)
Quarter: 2009Q4

REPORT INFORMATION
  Report Type: 
  Country: None (occurrence: None)
  Receive Date: 20091103
  Receipt Date: 20091021
  Transmission Date: 20100525
  Serious: Yes (Hospitalization, Disabling)
  Sender: FDA-Public Use
  Company Number: OSCN-GE-0703S-0141

PATIENT
  Age: 70 Year
  Sex: Female

DRUGS (6)
  1. OMNISCAN [Suspect]
     Indication: GRAND MAL CONVULSION
     Dosage: 10 ML, SINGLE DOSE, I.V. ; 50 ML, SINGLE DOSE, I.V.
     Route: 042
     Dates: start: 20020429, end: 20020429
  2. OMNISCAN [Suspect]
     Indication: RENAL ARTERY STENOSIS
     Dosage: 10 ML, SINGLE DOSE, I.V. ; 50 ML, SINGLE DOSE, I.V.
     Route: 042
     Dates: start: 20020429, end: 20020429
  3. OMNISCAN [Suspect]
     Indication: GRAND MAL CONVULSION
     Dosage: 10 ML, SINGLE DOSE, I.V. ; 50 ML, SINGLE DOSE, I.V.
     Route: 042
     Dates: start: 20020517, end: 20020517
  4. OMNISCAN [Suspect]
     Indication: RENAL ARTERY STENOSIS
     Dosage: 10 ML, SINGLE DOSE, I.V. ; 50 ML, SINGLE DOSE, I.V.
     Route: 042
     Dates: start: 20020517, end: 20020517
  5. MAGNEVIST [Concomitant]
  6. ACE INHIBITOR NOS [Concomitant]

REACTIONS (3)
  - DIALYSIS [None]
  - NEPHROGENIC SYSTEMIC FIBROSIS [None]
  - OFF LABEL USE [None]
